FAERS Safety Report 5326218-1 (Version None)
Quarter: 2007Q2

REPORT INFORMATION
  Report Type: 
  Country: None (occurrence: None)
  Receive Date: 20070516
  Receipt Date: 20070131
  Transmission Date: 20071010
  Serious: Yes (Hospitalization, Other)
  Sender: FDA-Public Use
  Company Number: TR-BRISTOL-MYERS SQUIBB COMPANY-13660816

PATIENT
  Age: 40 Year
  Sex: Male

DRUGS (7)
  1. CYCLOPHOSPHAMIDE [Suspect]
     Indication: SCLERODERMA
  2. CYCLOPHOSPHAMIDE [Suspect]
     Indication: SINUSITIS
  3. CYCLOPHOSPHAMIDE [Suspect]
     Indication: ARTHRALGIA
  4. CORTICOSTEROID [Suspect]
     Indication: SINUSITIS
  5. CORTICOSTEROID [Suspect]
     Indication: ARTHRALGIA
  6. CORTICOSTEROID [Suspect]
     Indication: SCLERODERMA
  7. DEPEN [Suspect]
     Indication: SCLERODERMA

REACTIONS (1)
  - HEPATITIS [None]
